FAERS Safety Report 5466989-7 (Version None)
Quarter: 2007Q3

REPORT INFORMATION
  Report Type: 
  Country: None (occurrence: None)
  Receive Date: 20070921
  Receipt Date: 20070921
  Transmission Date: 20080115
  Serious: Yes (Hospitalization)
  Sender: FDA-Public Use
  Company Number: None

PATIENT
  Age: 64 Year
  Sex: Male
  Weight: 84.369 kg

DRUGS (2)
  1. SYNTHROID [Suspect]
     Indication: HYPOTHYROIDISM
     Dosage: 100 MCG -ON 09-11-2007 1 TIME PO
     Route: 048
  2. LEVOTHYROXINE ON 09-11-2007- 25 MCG AMERICAN HEALTH [Suspect]
     Indication: HYPOTHYROIDISM
     Dosage: 50 MCG ON 09-11-2007 1 TIME PO
     Route: 048

REACTIONS (12)
  - ANGIOEDEMA [None]
  - DRUG DOSE OMISSION [None]
  - DRUG HYPERSENSITIVITY [None]
  - GLOBAL AMNESIA [None]
  - HYPERSENSITIVITY [None]
  - HYPERTENSION [None]
  - HYPERTHYROIDISM [None]
  - PALPITATIONS [None]
  - PRURITUS [None]
  - SWOLLEN TONGUE [None]
  - TRANSIENT ISCHAEMIC ATTACK [None]
  - URTICARIA [None]
